FAERS Safety Report 9563176 (Version 1)
Quarter: 2013Q3

REPORT INFORMATION
  Report Type: Spontaneous
  Country: US (occurrence: US)
  Receive Date: 20130927
  Receipt Date: 20130927
  Transmission Date: 20140515
  Serious: No
  Sender: FDA-Public Use
  Company Number: US-BRISTOL-MYERS SQUIBB COMPANY-18837294

PATIENT
  Age: 67 Year
  Sex: Male
  Weight: 82.54 kg

DRUGS (4)
  1. BYDUREON [Suspect]
     Indication: TYPE 2 DIABETES MELLITUS
     Dosage: INJ
     Route: 058
     Dates: start: 20130415
  2. ONGLYZA TABS [Suspect]
     Route: 048
  3. LANTUS [Suspect]
     Dosage: 50 UNITS INJ/SQ,QHS
     Route: 058
  4. NOVOLOG [Suspect]
     Dosage: INJ/SQ WITH MEALS
     Route: 058

REACTIONS (3)
  - Blood glucose increased [Not Recovered/Not Resolved]
  - Injection site pain [Not Recovered/Not Resolved]
  - Injection site haemorrhage [Not Recovered/Not Resolved]
